FAERS Safety Report 23256813 (Version 1)
Quarter: 2023Q4

REPORT INFORMATION
  Report Type: Spontaneous
  Country: US (occurrence: US)
  Receive Date: 20231204
  Receipt Date: 20231204
  Transmission Date: 20240110
  Serious: No
  Sender: FDA-Public Use
  Company Number: US-HIKMA PHARMACEUTICALS USA INC.-US-H14001-23-00421

PATIENT
  Sex: Female

DRUGS (1)
  1. IPRATROPIUM BROMIDE [Suspect]
     Active Substance: IPRATROPIUM BROMIDE\IPRATROPIUM BROMIDE ANHYDROUS
     Indication: Sinusitis
     Dosage: ONE SPRAY IN EACH NOSTRIL
     Route: 045

REACTIONS (10)
  - Dysphagia [Recovering/Resolving]
  - Sinus disorder [Unknown]
  - Dizziness [Not Recovered/Not Resolved]
  - Illness [Recovering/Resolving]
  - Headache [Unknown]
  - Urticaria [Unknown]
  - Pain [Unknown]
  - Vomiting [Unknown]
  - Product use issue [Unknown]
  - Off label use [Unknown]
